FAERS Safety Report 7664007-3 (Version None)
Quarter: 2011Q3

REPORT INFORMATION
  Report Type: 
  Country: None (occurrence: None)
  Receive Date: 20110805
  Receipt Date: 20100729
  Transmission Date: 20111222
  Serious: No
  Sender: FDA-Public Use
  Company Number: US-ABBOTT-10P-163-0661385-00

PATIENT
  Sex: Male
  Weight: 88.076 kg

DRUGS (4)
  1. BISOPROLOL FUMARATE AND HYDROCHLOROTHIAZIDE [Concomitant]
     Indication: PRODUCT USED FOR UNKNOWN INDICATION
     Dosage: 10/6.25 MILLIGRAMS
  2. TERAZOSIN HCL [Concomitant]
     Indication: PRODUCT USED FOR UNKNOWN INDICATION
  3. NIASPAN [Suspect]
     Indication: PRODUCT USED FOR UNKNOWN INDICATION
     Dates: start: 20100428, end: 20100629
  4. NIASPAN [Suspect]
     Dates: start: 20100713

REACTIONS (6)
  - FLUSHING [None]
  - HYPERHIDROSIS [None]
  - HEART RATE INCREASED [None]
  - DIZZINESS [None]
  - FEELING HOT [None]
  - PARAESTHESIA [None]
